FAERS Safety Report 18684806 (Version 1)
Quarter: 2020Q4

REPORT INFORMATION
  Report Type: Spontaneous
  Country: FR (occurrence: FR)
  Receive Date: 20201230
  Receipt Date: 20201230
  Transmission Date: 20210114
  Serious: Yes (Life-Threatening)
  Sender: FDA-Public Use
  Company Number: FR-NOVOPROD-777350

PATIENT
  Age: 39 Year
  Sex: Female
  Weight: 86 kg

DRUGS (7)
  1. CARBOPLATINE [Suspect]
     Active Substance: CARBOPLATIN
     Indication: ENDOMETRIAL CANCER
     Dosage: 820 MG, QD
     Route: 042
     Dates: start: 20201127, end: 20201127
  2. NEFOPAM [Suspect]
     Active Substance: NEFOPAM
     Indication: ANALGESIC THERAPY
     Dosage: 4 DF, QD
     Route: 048
     Dates: start: 20201123, end: 20201127
  3. OZEMPIC [Suspect]
     Active Substance: SEMAGLUTIDE
     Indication: CONSTIPATION
     Dosage: 25 MG, QD
     Route: 048
     Dates: start: 20201123, end: 20201127
  4. ONDANSETRON ACCORD [Suspect]
     Active Substance: ONDANSETRON
     Indication: PREMEDICATION
     Route: 042
     Dates: start: 20201127, end: 20201127
  5. PACLITAXEL KABI [Suspect]
     Active Substance: PACLITAXEL
     Indication: ENDOMETRIAL CANCER
     Dosage: 348 MG, QD
     Route: 042
     Dates: start: 20201127, end: 20201127
  6. POLARAMINE [Suspect]
     Active Substance: DEXCHLORPHENIRAMINE MALEATE
     Indication: PREMEDICATION
     Dosage: 5 MG, QD
     Route: 042
     Dates: start: 20201127, end: 20201127
  7. AZANTAC [Suspect]
     Active Substance: RANITIDINE HYDROCHLORIDE
     Indication: PREMEDICATION
     Dosage: 50 MG, QD
     Route: 042
     Dates: start: 20201127, end: 20201127

REACTIONS (3)
  - Syncope [Recovered/Resolved]
  - Product use in unapproved indication [Unknown]
  - Circulatory collapse [Recovered/Resolved]

NARRATIVE: CASE EVENT DATE: 20201123
